FAERS Safety Report 5251174-4 (Version None)
Quarter: 2007Q1

REPORT INFORMATION
  Report Type: 
  Country: None (occurrence: None)
  Receive Date: 20070228
  Receipt Date: 20061004
  Transmission Date: 20070707
  Serious: Yes (Other)
  Sender: FDA-Public Use
  Company Number: US-GLAXOSMITHKLINE-A0619569A

PATIENT
  Age: 79 Year
  Sex: Female

DRUGS (4)
  1. LAMICTAL [Suspect]
     Indication: BIPOLAR DISORDER
     Dosage: 50MG PER DAY
     Route: 048
     Dates: start: 20060522, end: 20060911
  2. DETROL [Concomitant]
  3. WELLBUTRIN [Concomitant]
  4. XANAX [Concomitant]

REACTIONS (1)
  - LYMPHADENOPATHY [None]
